FAERS Safety Report 10570212 (Version 1)
Quarter: 2014Q4

REPORT INFORMATION
  Report Type: Spontaneous
  Country: IT (occurrence: None)
  Receive Date: 20141105
  Receipt Date: 20141105
  Transmission Date: 20150529
  Serious: Yes (Hospitalization)
  Sender: FDA-Public Use
  Company Number: IMP_08019_2014

PATIENT
  Age: 61 Year
  Sex: Male

DRUGS (1)
  1. CARBIDOPA-LEVODOPA-B [Suspect]
     Active Substance: CARBIDOPA\LEVODOPA
     Indication: PARKINSON^S DISEASE

REACTIONS (10)
  - Aggression [None]
  - Bradykinesia [None]
  - Anaemia [None]
  - Obsessive thoughts [None]
  - Agitation [None]
  - Renal failure [None]
  - Persecutory delusion [None]
  - Proteinuria [None]
  - Somnolence [None]
  - Hallucination [None]
